FAERS Safety Report 5958258-3 (Version None)
Quarter: 2008Q4

REPORT INFORMATION
  Report Type: 
  Country: None (occurrence: None)
  Receive Date: 20081117
  Receipt Date: 20081117
  Transmission Date: 20090506
  Serious: Yes (Hospitalization)
  Sender: FDA-Public Use
  Company Number: None

PATIENT
  Age: 49 Year
  Sex: Female
  Weight: 74.8435 kg

DRUGS (1)
  1. PLAVIX [Suspect]
     Indication: CATHETERISATION CARDIAC
     Dosage: 75MG DAILY PO
     Route: 048
     Dates: start: 20080623, end: 20080708

REACTIONS (3)
  - LARYNGOSPASM [None]
  - RASH [None]
  - SKIN LESION [None]
